FAERS Safety Report 8764822 (Version 2)
Quarter: 2012Q4

REPORT INFORMATION
  Report Type: 
  Country: US (occurrence: US)
  Receive Date: 20120831
  Receipt Date: 20120912
  Transmission Date: 20130627
  Serious: Yes (Other)
  Sender: FDA-Public Use
  Company Number: US-ROCHE-1065791

PATIENT
  Age: 16 Year
  Sex: Male
  Weight: 77.18 kg

DRUGS (2)
  1. ACCUTANE [Suspect]
     Indication: ACNE
     Route: 065
     Dates: start: 20031113
  2. ACCUTANE [Suspect]
     Dosage: to 40 mg every day and 40 mg twice daily for 3 days in a week.
     Route: 065
     Dates: start: 20040115, end: 20040501

REACTIONS (6)
  - Colitis ulcerative [Unknown]
  - Inflammatory bowel disease [Not Recovered/Not Resolved]
  - Schizophrenia [Unknown]
  - Lip dry [Unknown]
  - Dry skin [Unknown]
  - Epistaxis [Unknown]
